FAERS Safety Report 4501595-X (Version None)
Quarter: 2004Q3

REPORT INFORMATION
  Report Type: 
  Country: None (occurrence: None)
  Receive Date: 20040928
  Receipt Date: 20040830
  Transmission Date: 20050211
  Serious: No
  Sender: FDA-Public Use
  Company Number: 04P-163-0272049-00

PATIENT
  Age: 45 Year
  Sex: Female

DRUGS (6)
  1. HUMIRA [Suspect]
     Indication: PSORIATIC ARTHROPATHY
     Dosage: 40 MG 1 IN 2 WK SUBCUTANEOUS
     Route: 058
     Dates: start: 20031001, end: 20031201
  2. METHOTREXATE [Concomitant]
  3. LEFLUNOMIDE [Concomitant]
  4. SERTRALINE HCL [Concomitant]
  5. CARISOPRODOL [Concomitant]
  6. BLOOD PRESSURE MEDICATION [Concomitant]

REACTIONS (1)
  - ASTHMA [None]
